FAERS Safety Report 11242041 (Version 2)
Quarter: 2015Q3

REPORT INFORMATION
  Report Type: Spontaneous
  Country: BR (occurrence: BR)
  Receive Date: 20150706
  Receipt Date: 20150720
  Transmission Date: 20151125
  Serious: Yes (Other)
  Sender: FDA-Public Use
  Company Number: PHHY2015BR068714

PATIENT
  Age: 46 Year
  Sex: Female

DRUGS (1)
  1. DIOVAN [Suspect]
     Active Substance: VALSARTAN
     Indication: HYPERTENSION
     Dosage: 1 DF, QD
     Route: 048
     Dates: start: 2010

REACTIONS (15)
  - Erythema [Recovering/Resolving]
  - Movement disorder [Recovering/Resolving]
  - Nausea [Recovering/Resolving]
  - Joint stiffness [Recovering/Resolving]
  - Malaise [Recovering/Resolving]
  - Eye pruritus [Recovering/Resolving]
  - Abdominal pain upper [Recovering/Resolving]
  - Product physical issue [Unknown]
  - Joint swelling [Recovering/Resolving]
  - Headache [Recovering/Resolving]
  - Dysgeusia [Recovering/Resolving]
  - Pruritus [Recovering/Resolving]
  - Ocular hyperaemia [Recovering/Resolving]
  - Heart rate increased [Recovering/Resolving]
  - Peripheral swelling [Recovering/Resolving]

NARRATIVE: CASE EVENT DATE: 201506
